FAERS Safety Report 18449987 (Version 2)
Quarter: 2020Q4

REPORT INFORMATION
  Report Type: Spontaneous
  Country: US (occurrence: US)
  Receive Date: 20201030
  Receipt Date: 20201110
  Transmission Date: 20210114
  Serious: Yes (Hospitalization)
  Sender: FDA-Public Use
  Company Number: US-TEVA-2020-US-1842111

PATIENT
  Age: 6 Decade
  Sex: Male

DRUGS (16)
  1. CLONAZEPAM. [Suspect]
     Active Substance: CLONAZEPAM
     Indication: RESTLESS LEGS SYNDROME
  2. TRAZODONE [Concomitant]
     Active Substance: TRAZODONE HYDROCHLORIDE
     Indication: DRUG WITHDRAWAL SYNDROME
     Route: 065
  3. CLONAZEPAM. [Suspect]
     Active Substance: CLONAZEPAM
     Indication: AGITATION
     Dosage: 0.5 MG
     Route: 048
  4. HALOPERIDOL. [Suspect]
     Active Substance: HALOPERIDOL
     Indication: AGITATION
     Dosage: 5 MG
     Route: 048
  5. HALOPERIDOL. [Suspect]
     Active Substance: HALOPERIDOL
     Indication: RESTLESS LEGS SYNDROME
  6. METHADONE [Suspect]
     Active Substance: METHADONE HYDROCHLORIDE
     Indication: DRUG USE DISORDER
     Dosage: 90 MILLIGRAM DAILY;
     Route: 048
  7. DIPHENHYDRAMINE. [Suspect]
     Active Substance: DIPHENHYDRAMINE
     Indication: AGITATION
     Dosage: 50 MG
     Route: 048
  8. DIPHENHYDRAMINE. [Suspect]
     Active Substance: DIPHENHYDRAMINE
     Indication: RESTLESS LEGS SYNDROME
  9. SERTRALINE [Suspect]
     Active Substance: SERTRALINE HYDROCHLORIDE
     Indication: PSYCHOTIC DISORDER
     Dosage: 100 MILLIGRAM DAILY;
     Route: 065
  10. QUETIAPINE. [Suspect]
     Active Substance: QUETIAPINE
     Indication: PSYCHOTIC DISORDER
     Dosage: 500 MILLIGRAM DAILY; EVERY NIGHT
     Route: 065
  11. IBUPROFEN. [Concomitant]
     Active Substance: IBUPROFEN
     Indication: DRUG WITHDRAWAL SYNDROME
     Route: 065
  12. BUPRENORPHINE. [Suspect]
     Active Substance: BUPRENORPHINE
     Indication: DRUG USE DISORDER
     Dosage: 2 MILLIGRAM DAILY;
     Route: 060
  13. GABAPENTIN. [Suspect]
     Active Substance: GABAPENTIN
     Indication: PSYCHOTIC DISORDER
     Route: 065
  14. CLONIDINE. [Concomitant]
     Active Substance: CLONIDINE
     Indication: DRUG WITHDRAWAL SYNDROME
     Route: 065
  15. MIRTAZAPINE. [Suspect]
     Active Substance: MIRTAZAPINE
     Indication: PSYCHOTIC DISORDER
     Dosage: 15 MILLIGRAM DAILY; EVERY NIGHT
     Route: 065
  16. PRAZOSIN. [Suspect]
     Active Substance: PRAZOSIN
     Indication: PSYCHOTIC DISORDER
     Dosage: 10 MILLIGRAM DAILY; EVERY NIGHT
     Route: 065

REACTIONS (4)
  - Drug withdrawal syndrome [Recovered/Resolved]
  - Drug ineffective [Unknown]
  - Off label use [Unknown]
  - Restless legs syndrome [Recovered/Resolved]
